FAERS Safety Report 25314160 (Version 2)
Quarter: 2025Q2

REPORT INFORMATION
  Report Type: Spontaneous
  Country: US (occurrence: US)
  Receive Date: 20250514
  Receipt Date: 20250523
  Transmission Date: 20250717
  Serious: Yes (Other)
  Sender: TEVA
  Company Number: US-TEVA-VS-3329147

PATIENT
  Age: 45 Year
  Sex: Male

DRUGS (1)
  1. URSODIOL [Suspect]
     Active Substance: URSODIOL
     Indication: Cholestasis
     Route: 065

REACTIONS (3)
  - Primary biliary cholangitis [Unknown]
  - Autoimmune hepatitis [Unknown]
  - Treatment noncompliance [Unknown]
